FAERS Safety Report 13735007 (Version 1)
Quarter: 2017Q3

REPORT INFORMATION
  Report Type: Spontaneous
  Country: US (occurrence: US)
  Receive Date: 20170710
  Receipt Date: 20170710
  Transmission Date: 20171127
  Serious: Yes (Other)
  Sender: FDA-Public Use
  Company Number: US-HETERO LABS LTD-2023119

PATIENT
  Sex: Female
  Weight: 81.64 kg

DRUGS (2)
  1. LITHIUM. [Suspect]
     Active Substance: LITHIUM
     Indication: ANXIETY
     Route: 065
  2. BUSPAR [Concomitant]
     Active Substance: BUSPIRONE HYDROCHLORIDE
     Route: 065

REACTIONS (8)
  - Slow speech [Unknown]
  - Somnolence [Unknown]
  - Drug ineffective [Unknown]
  - Bipolar disorder [Unknown]
  - Anxiety [Unknown]
  - Condition aggravated [Unknown]
  - Decreased activity [Unknown]
  - Anger [Unknown]
